FAERS Safety Report 5390712-8 (Version None)
Quarter: 2007Q3

REPORT INFORMATION
  Report Type: 
  Country: None (occurrence: None)
  Receive Date: 20070716
  Receipt Date: 20070417
  Transmission Date: 20080115
  Serious: Yes (Death)
  Sender: FDA-Public Use
  Company Number: MPS1-10688

PATIENT
  Age: 5 Year
  Sex: Female
  Weight: 14 kg

DRUGS (7)
  1. ALDURAZYME [Suspect]
     Indication: MUCOPOLYSACCHARIDOSIS IH
     Dosage: 1400 UNITS 1XW IV
     Route: 042
     Dates: start: 20040113, end: 20061010
  2. STEROIDS [Concomitant]
  3. ANTIBIOTICS [Concomitant]
  4. ANTIFUNGALS [Concomitant]
  5. DOPAMINE HCL [Concomitant]
  6. CYCLOSPORINE [Concomitant]
  7. MYCOPHENOLATE MOFETIL [Concomitant]

REACTIONS (2)
  - GRAFT VERSUS HOST DISEASE [None]
  - STEM CELL TRANSPLANT [None]
